FAERS Safety Report 9856047 (Version 2)
Quarter: 2014Q1

REPORT INFORMATION
  Report Type: Spontaneous
  Country: JP (occurrence: JP)
  Receive Date: 20140130
  Receipt Date: 20140217
  Transmission Date: 20141002
  Serious: Yes (Hospitalization)
  Sender: FDA-Public Use
  Company Number: PHHY2014JP010540

PATIENT
  Age: 78 Year
  Sex: Female

DRUGS (2)
  1. FAMVIR [Suspect]
     Dosage: 500 MG, TID
     Route: 048
     Dates: start: 20140114, end: 20140114
  2. CALONAL [Concomitant]
     Dosage: UNK UKN, UNK
     Dates: start: 20140114

REACTIONS (2)
  - Loss of consciousness [Recovered/Resolved]
  - Vomiting [Recovered/Resolved]
